FAERS Safety Report 8903328 (Version 4)
Quarter: 2013Q4

REPORT INFORMATION
  Report Type: Report from Study
  Country: DE (occurrence: DE)
  Receive Date: 20121111
  Receipt Date: 20131120
  Transmission Date: 20140711
  Serious: Yes (Death, Hospitalization)
  Sender: FDA-Public Use
  Company Number: DE-BRISTOL-MYERS SQUIBB COMPANY-17096512

PATIENT
  Age: 62 Year
  Sex: Female
  Weight: 84 kg

DRUGS (6)
  1. ERBITUX [Suspect]
     Indication: COLORECTAL CANCER METASTATIC
     Dosage: ON 4OCT12-764MG?FRM 11OCT-18OCT12:477MG/WK?RECENT INF:18OCT12
     Route: 042
     Dates: start: 20121004, end: 20121016
  2. IRINOTECAN HCL [Concomitant]
     Indication: COLORECTAL CANCER METASTATIC
     Dosage: 140MG ON 04OCT12?100MG ON 18OCT12?80MG/M2:4OCT12-18OCT12:14D
     Route: 042
     Dates: start: 20121004, end: 20121018
  3. 5-FLUOROURACIL [Concomitant]
     Indication: COLORECTAL CANCER METASTATIC
     Dosage: 3500MG ON 04 + 11OCT12?2800MG ON 18OCT12?2000MG/M2:4OCT-18OCT12:14D
     Route: 042
     Dates: start: 20121004
  4. NOVAMINSULFON [Concomitant]
     Indication: ANALGESIC THERAPY
     Route: 042
     Dates: start: 20121017, end: 20121017
  5. THYROXINE [Concomitant]
     Indication: THYROXINE THERAPY
  6. FOLINIC ACID [Concomitant]
     Indication: COLORECTAL CANCER METASTATIC
     Route: 042
     Dates: start: 20121004, end: 20121018

REACTIONS (4)
  - Sepsis [Fatal]
  - Cardiac failure [Fatal]
  - Renal failure [Fatal]
  - Pancytopenia [Fatal]
